FAERS Safety Report 4288721-5 (Version None)
Quarter: 2004Q1

REPORT INFORMATION
  Report Type: 
  Country: None (occurrence: None)
  Receive Date: 20040205
  Receipt Date: 20040129
  Transmission Date: 20041129
  Serious: Yes (Hospitalization)
  Sender: FDA-Public Use
  Company Number: 2004-112436-NL

PATIENT
  Age: 79 Year
  Sex: Female

DRUGS (8)
  1. MIRTAZAPINE [Suspect]
     Dosage: DF
  2. COLECALCIFEROL [Concomitant]
  3. GLICLAZIDE [Concomitant]
  4. SODIUM PICOSULFATE [Concomitant]
  5. OSTEO [Concomitant]
  6. MOVICOL [Concomitant]
  7. POTASSIUM GLUCONATE [Concomitant]
  8. ROFECOXIB [Concomitant]

REACTIONS (2)
  - DYSTONIA [None]
  - MYOCLONUS [None]
